FAERS Safety Report 15392748 (Version 3)
Quarter: 2018Q4

REPORT INFORMATION
  Report Type: Spontaneous
  Country: CH (occurrence: CH)
  Receive Date: 20180917
  Receipt Date: 20181015
  Transmission Date: 20190204
  Serious: Yes (Life-Threatening, Hospitalization)
  Sender: FDA-Public Use
  Company Number: CH-OTSUKA-2018_030396

PATIENT
  Age: 38 Year
  Sex: Male
  Weight: 95 kg

DRUGS (2)
  1. ABILIFY MAINTENA [Suspect]
     Active Substance: ARIPIPRAZOLE
     Indication: MANIA
     Dosage: 400 MG, QW (EVERY 4 WEEKS)
     Route: 065
     Dates: end: 201703
  2. ABILIFY [Suspect]
     Active Substance: ARIPIPRAZOLE
     Indication: BIPOLAR I DISORDER
     Dosage: 15 MG, ONCE PER DAY
     Route: 065
     Dates: start: 201601, end: 201702

REACTIONS (5)
  - Euphoric mood [Recovered/Resolved]
  - Product use in unapproved indication [Unknown]
  - Depression [Recovered/Resolved]
  - Suicidal ideation [Recovered/Resolved]
  - Mania [Recovered/Resolved]

NARRATIVE: CASE EVENT DATE: 2017
